FAERS Safety Report 8317425 (Version 3)
Quarter: 2022Q4

REPORT INFORMATION
  Report Type: Report from Study
  Country: US (occurrence: None)
  Receive Date: 20111230
  Receipt Date: 20221017
  Transmission Date: 20230113
  Serious: Yes (Death, Life-Threatening, Hospitalization)
  Sender: FDA-Public Use
  Company Number: US-ROCHE-1025920

PATIENT
  Age: 71 Year
  Sex: Female
  Weight: 64.4 kg

DRUGS (4)
  1. BEVACIZUMAB [Suspect]
     Active Substance: BEVACIZUMAB
     Indication: Ovarian epithelial cancer
     Dosage: OVER 30 -90 MINUTES ON DAY 1 OF CYCLE 2 PLUS
     Route: 042
     Dates: start: 20111103
  2. CARBOPLATIN [Suspect]
     Active Substance: CARBOPLATIN
     Indication: Ovarian epithelial cancer
     Dosage: AUC 6 ON DAY 1 (CYCLES 1-6),
     Route: 042
     Dates: start: 20111103
  3. PACLITAXEL [Suspect]
     Active Substance: PACLITAXEL
     Indication: Ovarian epithelial cancer
     Dosage: OVER 1 HOUR ON DAY 1,8 AND 15
     Route: 042
  4. PACLITAXEL [Suspect]
     Active Substance: PACLITAXEL
     Dosage: DOSE REDUCED
     Route: 065
     Dates: start: 20111123

REACTIONS (5)
  - Ventricular fibrillation [Fatal]
  - Atrial fibrillation [Fatal]
  - Sinus tachycardia [Fatal]
  - Ejection fraction decreased [Unknown]
  - Hypokalaemia [Unknown]

NARRATIVE: CASE EVENT DATE: 20111209
